FAERS Safety Report 20639975 (Version 3)
Quarter: 2022Q4

REPORT INFORMATION
  Report Type: Spontaneous
  Country: US (occurrence: US)
  Receive Date: 20220326
  Receipt Date: 20221123
  Transmission Date: 20230112
  Serious: No
  Sender: FDA-Public Use
  Company Number: US-SA-SAC20220321000149

PATIENT
  Age: 63 Year
  Sex: Male

DRUGS (1)
  1. DUPIXENT [Suspect]
     Active Substance: DUPILUMAB
     Dosage: 300MG; FREQUENCY: OTHER
     Route: 058
     Dates: start: 202112

REACTIONS (4)
  - Injection site pain [Unknown]
  - Eyelids pruritus [Unknown]
  - Eye discharge [Unknown]
  - Eye pruritus [Unknown]

NARRATIVE: CASE EVENT DATE: 20220316
